FAERS Safety Report 8151764-5 (Version None)
Quarter: 2012Q1

REPORT INFORMATION
  Report Type: 
  Country: None (occurrence: None)
  Receive Date: 20120221
  Receipt Date: 20120207
  Transmission Date: 20120608
  Serious: No
  Sender: FDA-Public Use
  Company Number: US-BIOGENIDEC-2012BI005039

PATIENT
  Sex: Female

DRUGS (4)
  1. TYSABRI [Suspect]
     Indication: MULTIPLE SCLEROSIS
     Route: 042
     Dates: start: 20050103, end: 20050201
  2. AVONEX [Concomitant]
     Indication: MULTIPLE SCLEROSIS
     Route: 030
     Dates: start: 20010821
  3. AVONEX [Concomitant]
     Route: 030
  4. TYSABRI [Suspect]
     Route: 042
     Dates: start: 20080211

REACTIONS (3)
  - MULTIPLE ALLERGIES [None]
  - NASOPHARYNGITIS [None]
  - SINUSITIS [None]
